FAERS Safety Report 7726615-0 (Version None)
Quarter: 2011Q3

REPORT INFORMATION
  Report Type: 
  Country: None (occurrence: None)
  Receive Date: 20110902
  Receipt Date: 20110822
  Transmission Date: 20111222
  Serious: Yes (Other)
  Sender: FDA-Public Use
  Company Number: US-ELI_LILLY_AND_COMPANY-US201108007934

PATIENT
  Age: 56 Year
  Sex: Female

DRUGS (12)
  1. CYMBALTA [Suspect]
     Dosage: 60 MG, QOD
  2. CYMBALTA [Suspect]
     Dosage: UNK, QD
  3. PRAVASTATIN [Concomitant]
  4. CYMBALTA [Suspect]
     Indication: FIBROMYALGIA
     Dosage: 60 MG, QD
     Dates: start: 20110201
  5. ARTHROTEC [Concomitant]
  6. CYMBALTA [Suspect]
     Dosage: 30 MG, QOD
  7. CYMBALTA [Suspect]
     Dosage: 30 MG, QOD
  8. CYMBALTA [Suspect]
     Dosage: UNK, QOD
  9. PRILOSEC [Concomitant]
  10. CYMBALTA [Suspect]
     Dosage: 30 MG, QD
  11. ANTIHYPERTENSIVES [Concomitant]
  12. VITAMIN D [Concomitant]

REACTIONS (21)
  - PAIN [None]
  - GAIT DISTURBANCE [None]
  - MEMORY IMPAIRMENT [None]
  - DRUG WITHDRAWAL SYNDROME [None]
  - WRONG TECHNIQUE IN DRUG USAGE PROCESS [None]
  - FEELING OF BODY TEMPERATURE CHANGE [None]
  - PERIPHERAL COLDNESS [None]
  - NAUSEA [None]
  - APHASIA [None]
  - HYPERHIDROSIS [None]
  - ANGER [None]
  - MANIA [None]
  - FEELING ABNORMAL [None]
  - BLOOD PRESSURE INCREASED [None]
  - DRUG INEFFECTIVE [None]
  - INAPPROPRIATE AFFECT [None]
  - AFFECT LABILITY [None]
  - DEPRESSION [None]
  - MUSCLE TWITCHING [None]
  - TINNITUS [None]
  - CRYING [None]
